FAERS Safety Report 25726686 (Version 2)
Quarter: 2025Q3

REPORT INFORMATION
  Report Type: Report from Study
  Country: CA (occurrence: CA)
  Receive Date: 20250826
  Receipt Date: 20250923
  Transmission Date: 20251021
  Serious: Yes (Death, Other)
  Sender: FERRING
  Company Number: CA-FERRINGPH-2025FE04596

PATIENT

DRUGS (1)
  1. DEGARELIX [Suspect]
     Active Substance: DEGARELIX
     Indication: Hormone-dependent prostate cancer
     Dosage: 80 MG, MONTHLY
     Route: 058
     Dates: start: 20241101

REACTIONS (3)
  - Prostate cancer metastatic [Fatal]
  - Malaise [Unknown]
  - Asthenia [Unknown]
